FAERS Safety Report 11001902 (Version 2)
Quarter: 2015Q2

REPORT INFORMATION
  Report Type: Spontaneous
  Country: HU (occurrence: HU)
  Receive Date: 20150408
  Receipt Date: 20150506
  Transmission Date: 20150821
  Serious: Yes (Disabling)
  Sender: FDA-Public Use
  Company Number: PHHY2015HU037308

PATIENT
  Age: 64 Year
  Sex: Female

DRUGS (4)
  1. EXFORGE [Suspect]
     Active Substance: AMLODIPINE BESYLATE\VALSARTAN
     Indication: HYPERTENSION
     Dosage: 1 DF (160/5 MG), UNK (FILM COATED TABLET)
     Route: 048
     Dates: start: 2008
  2. EXFORGE [Suspect]
     Active Substance: AMLODIPINE BESYLATE\VALSARTAN
     Dosage: 1 DF (80/5 MG), QD, (FILM COATED TABLET)
     Route: 048
     Dates: start: 200903
  3. EXFORGE [Suspect]
     Active Substance: AMLODIPINE BESYLATE\VALSARTAN
     Dosage: 1 DF (160/ 5 MG), QD (FILM COATED TABLET)
     Route: 048
     Dates: start: 200901, end: 200903
  4. EXFORGE [Suspect]
     Active Substance: AMLODIPINE BESYLATE\VALSARTAN
     Dosage: 1 DF(80/5 MG), QD, (FILM COATED TABLET)
     Route: 048
     Dates: start: 20150216

REACTIONS (8)
  - Visual impairment [Recovered/Resolved]
  - Hypotension [Recovered/Resolved]
  - Rash [Recovered/Resolved]
  - Visual impairment [Recovering/Resolving]
  - Syncope [Recovered/Resolved]
  - Visual field defect [Unknown]
  - Intraocular pressure increased [Recovering/Resolving]
  - Hypertension [Unknown]

NARRATIVE: CASE EVENT DATE: 200903
